FAERS Safety Report 11801450 (Version 1)
Quarter: 2015Q4

REPORT INFORMATION
  Report Type: Spontaneous
  Country: US (occurrence: US)
  Receive Date: 20151204
  Receipt Date: 20151204
  Transmission Date: 20160305
  Serious: Yes (Hospitalization)
  Sender: FDA-Public Use
  Company Number: US-BAUSCH-BL-2015-028708

PATIENT
  Age: 84 Year
  Sex: Male

DRUGS (1)
  1. XENAZINE [Suspect]
     Active Substance: TETRABENAZINE
     Indication: NEOPLASM MALIGNANT
     Dosage: THREE TABLETS IN THE MORNING, TWO TABLETS IN THE AFTERNOON, AND THREE TABLETS IN THE EVENING
     Route: 048
     Dates: start: 20150926

REACTIONS (2)
  - Hospitalisation [Unknown]
  - Off label use [Not Recovered/Not Resolved]

NARRATIVE: CASE EVENT DATE: 20150926
